FAERS Safety Report 9145337 (Version 1)
Quarter: 2013Q1

REPORT INFORMATION
  Report Type: Report from Study
  Country: US (occurrence: US)
  Receive Date: 20130307
  Receipt Date: 20130307
  Transmission Date: 20140127
  Serious: Yes (Hospitalization)
  Sender: FDA-Public Use
  Company Number: US-CELGENEUS-163-C4047-13010641

PATIENT
  Age: 71 Year
  Sex: Male
  Weight: 95.5 kg

DRUGS (21)
  1. CC-4047 [Suspect]
     Indication: PLASMA CELL MYELOMA
     Dosage: 4 MILLIGRAM
     Route: 048
     Dates: start: 20121018, end: 20130102
  2. CC-4047 [Suspect]
     Dosage: 3 MILLIGRAM
     Route: 048
     Dates: start: 20130124
  3. DEXAMETHASONE [Suspect]
     Indication: PLASMA CELL MYELOMA
     Dosage: 40 MILLIGRAM
     Route: 048
     Dates: start: 20121018
  4. DEXAMETHASONE [Suspect]
     Dosage: 20 MILLIGRAM
     Route: 048
     Dates: start: 20130124
  5. CARFILZOMIB [Suspect]
     Indication: PLASMA CELL MYELOMA
     Route: 041
     Dates: start: 20121018
  6. CARFILZOMIB [Suspect]
     Dosage: 20 MILLIGRAM/SQ. METER
     Route: 065
     Dates: start: 20121227
  7. ASPIRIN [Concomitant]
     Indication: PROPHYLAXIS
     Dosage: 325 MILLIGRAM
     Route: 065
     Dates: start: 20121018, end: 20121225
  8. ACYCLOVIR [Concomitant]
     Indication: INFECTION PROPHYLAXIS
     Dosage: 400 MILLIGRAM
     Route: 065
     Dates: start: 20121018
  9. ALLOPURINOL [Concomitant]
     Indication: TUMOUR LYSIS SYNDROME
     Dosage: 300-600MG
     Route: 065
     Dates: start: 20121018, end: 20121213
  10. DILTIAZEM [Concomitant]
     Indication: ATRIAL FIBRILLATION
     Dosage: 180 MILLIGRAM
     Route: 065
     Dates: start: 20121025, end: 20121225
  11. GABAPENTIN [Concomitant]
     Indication: NEUROPATHY PERIPHERAL
     Dosage: 100 MILLIGRAM
     Route: 065
     Dates: start: 20121018
  12. MULTIVITAMINS [Concomitant]
     Indication: PROPHYLAXIS
     Dosage: 1 TABLET
     Route: 048
     Dates: start: 20121018
  13. ARTIFICIAL TEARS [Concomitant]
     Indication: DRY EYE
     Dosage: 2 DROPS
     Route: 047
     Dates: start: 20121018
  14. CETIRIZINE [Concomitant]
     Indication: SEASONAL ALLERGY
     Dosage: 10 MILLIGRAM
     Route: 065
     Dates: start: 20121018
  15. PROTONIX [Concomitant]
     Indication: DYSPEPSIA
     Dosage: 40 MILLIGRAM
     Route: 065
     Dates: start: 20121018
  16. LASIX [Concomitant]
     Indication: OEDEMA
     Dosage: 10 MILLIGRAM
     Route: 065
     Dates: start: 20121018, end: 20121230
  17. DIGOXIN [Concomitant]
     Indication: ATRIAL FIBRILLATION
     Dosage: 125 MICROGRAM
     Route: 065
     Dates: start: 20121224, end: 20130101
  18. AMIODARONE [Concomitant]
     Indication: ATRIAL FIBRILLATION
     Dosage: 200 MILLIGRAM
     Route: 065
     Dates: start: 20121225
  19. WARFARIN [Concomitant]
     Indication: CEREBROVASCULAR ACCIDENT PROPHYLAXIS
     Dosage: 5 MILLIGRAM
     Route: 065
     Dates: start: 20121225, end: 20130107
  20. MIDODRINE [Concomitant]
     Indication: DIZZINESS
     Dosage: 5 MILLIGRAM
     Route: 065
     Dates: start: 20130110
  21. INSULIN ASPART [Concomitant]
     Indication: TYPE 2 DIABETES MELLITUS
     Dosage: 5 MILLIGRAM
     Route: 065
     Dates: start: 20130104

REACTIONS (1)
  - Syncope [Recovered/Resolved]
